FAERS Safety Report 12257416 (Version 2)
Quarter: 2016Q2

REPORT INFORMATION
  Report Type: Spontaneous
  Country: US (occurrence: US)
  Receive Date: 20160412
  Receipt Date: 20160426
  Transmission Date: 20160815
  Serious: Yes (Other)
  Sender: FDA-Public Use
  Company Number: US-SMITH AND NEPHEW, INC-2016SMT00301

PATIENT
  Age: 86 Year
  Sex: Female
  Weight: 71.2 kg

DRUGS (8)
  1. PRAVASTATIN [Concomitant]
     Active Substance: PRAVASTATIN\PRAVASTATIN SODIUM
     Dosage: 40 MG, 1X/DAY
  2. AMLODIPINE [Concomitant]
     Active Substance: AMLODIPINE BESYLATE
     Dosage: 10 MG, 1X/DAY
  3. TRAMADOL. [Concomitant]
     Active Substance: TRAMADOL
  4. ZINC [Concomitant]
     Active Substance: ZINC\ZINC CHLORIDE
     Dosage: UNK
     Dates: start: 201602
  5. PAXIL [Concomitant]
     Active Substance: PAROXETINE HYDROCHLORIDE
     Dosage: 10 MG, 1X/DAY
  6. VITAMIN C [Concomitant]
     Active Substance: ASCORBIC ACID
     Dosage: UNK
     Dates: start: 201602
  7. REGRANEX [Suspect]
     Active Substance: BECAPLERMIN
     Indication: VASCULITIC ULCER
     Dosage: UNK, 1X/DAY
     Route: 061
     Dates: start: 20160307, end: 20160311
  8. PRESERVISION [Concomitant]
     Active Substance: MINERALS\VITAMINS

REACTIONS (8)
  - Peripheral swelling [Recovered/Resolved]
  - Application site erythema [Recovered/Resolved]
  - Wound [Recovered/Resolved]
  - Hypersensitivity [Recovered/Resolved]
  - Skin tightness [Recovered/Resolved]
  - Off label use [Unknown]
  - Application site pain [Recovered/Resolved]
  - Wound infection staphylococcal [Unknown]

NARRATIVE: CASE EVENT DATE: 201603
